FAERS Safety Report 8897459 (Version 1)
Quarter: 2012Q4

REPORT INFORMATION
  Report Type: Spontaneous
  Country: US (occurrence: None)
  Receive Date: 20121108
  Receipt Date: 20121108
  Transmission Date: 20130627
  Serious: Yes (Life-Threatening, Hospitalization)
  Sender: FDA-Public Use
  Company Number: None

PATIENT
  Age: 64 Year
  Sex: Male
  Weight: 107 kg

DRUGS (8)
  1. PEGLOTICASE [Suspect]
     Indication: GOUT
     Route: 042
     Dates: start: 20120816, end: 20121106
  2. CITAOPRAM [Concomitant]
  3. FUROSEMID [Concomitant]
  4. INDOMETHACIN [Concomitant]
     Indication: GOUT
  5. METOPROLOL TARTRATE [Concomitant]
  6. OMEPRAZOLE [Concomitant]
  7. OXYCODONE-ACETAMINOPHEN [Concomitant]
  8. VITAMIN B12 [Concomitant]

REACTIONS (10)
  - Hypotension [None]
  - Pulse abnormal [None]
  - Respiratory disorder [None]
  - Infusion related reaction [None]
  - Feeling abnormal [None]
  - Pulseless electrical activity [None]
  - Loss of consciousness [None]
  - Atrial fibrillation [None]
  - Urinary incontinence [None]
  - Nausea [None]
